FAERS Safety Report 6235835-6 (Version None)
Quarter: 2009Q2

REPORT INFORMATION
  Report Type: 
  Country: None (occurrence: None)
  Receive Date: 20090619
  Receipt Date: 20090609
  Transmission Date: 20091009
  Serious: Yes (Other)
  Sender: FDA-Public Use
  Company Number: US-WYE-H09683909

PATIENT
  Sex: Female
  Weight: 83.99 kg

DRUGS (6)
  1. EFFEXOR XR [Suspect]
     Indication: BIPOLAR DISORDER
     Route: 048
     Dates: start: 20090423
  2. ETHANOL [Suspect]
     Dosage: ^HAD 4 ALCOHOLIC DRINKS^
     Dates: start: 20090329, end: 20090329
  3. ADDERALL XR 20 [Concomitant]
  4. MUCINEX [Concomitant]
     Dosage: UNKNOWN
  5. NEURONTIN [Concomitant]
  6. SUBOXONE [Concomitant]
     Dosage: ^2:8 MG/2MG EACH AM^

REACTIONS (3)
  - AGGRESSION [None]
  - ALCOHOL INTOLERANCE [None]
  - LOSS OF CONSCIOUSNESS [None]
